FAERS Safety Report 9853380 (Version 1)
Quarter: 2014Q1

REPORT INFORMATION
  Report Type: Spontaneous
  Country: US (occurrence: US)
  Receive Date: 20140129
  Receipt Date: 20140129
  Transmission Date: 20141002
  Serious: Yes (Other)
  Sender: FDA-Public Use
  Company Number: US-TEVA-458346USA

PATIENT
  Age: 66 Year
  Sex: Female
  Weight: 53.57 kg

DRUGS (3)
  1. AZILECT [Suspect]
     Indication: PARKINSON^S DISEASE
     Dates: start: 20131013
  2. AZILECT [Suspect]
     Dosage: ONE HALF TABLET DAILY FOR 3 DAYS
     Dates: end: 20140107
  3. SINEMET [Concomitant]
     Indication: PARKINSON^S DISEASE
     Dosage: 25/100, 1.5 TABLETS DAILY
     Route: 048

REACTIONS (16)
  - Burns second degree [Recovered/Resolved]
  - Photosensitivity reaction [Not Recovered/Not Resolved]
  - Paraesthesia [Unknown]
  - Withdrawal syndrome [Not Recovered/Not Resolved]
  - Malaise [Not Recovered/Not Resolved]
  - Lethargy [Not Recovered/Not Resolved]
  - Somnolence [Not Recovered/Not Resolved]
  - Tremor [Not Recovered/Not Resolved]
  - Pain [Recovered/Resolved]
  - Scar [Not Recovered/Not Resolved]
  - Paraesthesia [Not Recovered/Not Resolved]
  - Chills [Not Recovered/Not Resolved]
  - Formication [Not Recovered/Not Resolved]
  - Burning sensation [Not Recovered/Not Resolved]
  - Dry skin [Unknown]
  - Skin fissures [Unknown]
